FAERS Safety Report 9703943 (Version 1)
Quarter: 2013Q4

REPORT INFORMATION
  Report Type: Spontaneous
  Country: US (occurrence: None)
  Receive Date: 20131121
  Receipt Date: 20131121
  Transmission Date: 20140711
  Serious: Yes (Hospitalization)
  Sender: FDA-Public Use
  Company Number: None

PATIENT
  Age: 22 Year
  Sex: Female
  Weight: 80 kg

DRUGS (16)
  1. INSULIN ASPART [Suspect]
     Indication: HYPERGLYCAEMIA
     Dates: start: 20110915
  2. INSULIN GLARGINE [Suspect]
  3. HEPARIN [Concomitant]
  4. WARFARIN [Concomitant]
  5. DIPHENHYDRAMINE [Concomitant]
  6. FOLIC ACID [Concomitant]
  7. HYDROMORPHONE [Concomitant]
  8. HYDROXYZINE [Concomitant]
  9. LABETAOLOL [Concomitant]
  10. LEVETIRACETAM [Concomitant]
  11. MIRTAZIPINE [Concomitant]
  12. ONDANSETRON [Concomitant]
  13. PREDNISOLONE [Concomitant]
  14. SEVELAMER [Concomitant]
  15. SIMVASTATIN [Concomitant]
  16. TRAZODONE [Concomitant]

REACTIONS (1)
  - Blood glucose decreased [None]
